FAERS Safety Report 9422541 (Version 6)
Quarter: 2014Q1

REPORT INFORMATION
  Report Type: Report from Study
  Country: JP (occurrence: JP)
  Receive Date: 20130726
  Receipt Date: 20140227
  Transmission Date: 20141002
  Serious: Yes (Death, Hospitalization)
  Sender: FDA-Public Use
  Company Number: JP-PFIZER INC-2013213670

PATIENT
  Age: 76 Year
  Sex: Male
  Weight: 65 kg

DRUGS (12)
  1. CRIZOTINIB [Suspect]
     Indication: NON-SMALL CELL LUNG CANCER
     Dosage: 250 MG, 2X/DAY
     Route: 048
     Dates: start: 20130508, end: 20130511
  2. CRIZOTINIB [Suspect]
     Dosage: 250 MG, 2X/DAY
     Route: 048
     Dates: start: 20130514, end: 20130710
  3. MICARDIS [Concomitant]
     Dosage: 80 MG, 1X/DAY
     Route: 048
  4. MUCODYNE [Concomitant]
     Dosage: 500 MG, 3X/DAY
     Route: 048
  5. MAGNESIUM OXIDE [Concomitant]
     Dosage: 500 MG, 3X/DAY
     Route: 048
  6. PURSENNID [Concomitant]
     Dosage: 12 MG, 1X/DAY
     Route: 048
  7. TAKEPRON OD [Concomitant]
     Dosage: 15 MG, 1X/DAY
     Route: 048
  8. MOBIC [Concomitant]
     Dosage: 10 MG, 1X/DAY
     Route: 048
  9. PANVITAN [Concomitant]
     Dosage: 1 G, 1X/DAY
     Route: 048
  10. WARFARIN [Concomitant]
     Dosage: 2 MG, 1X/DAY
     Route: 048
  11. URSO [Concomitant]
     Indication: HEPATIC FUNCTION ABNORMAL
     Dosage: 100 MG, 3X/DAY
     Route: 048
     Dates: start: 20130523
  12. AMINOACETIC ACID/DL-METHIONINE/GLYCYRRHIZIC ACID [Concomitant]
     Indication: HEPATIC FUNCTION ABNORMAL
     Dosage: 6 DF, 3X/DAY
     Route: 048
     Dates: start: 20130523

REACTIONS (1)
  - Interstitial lung disease [Fatal]
